FAERS Safety Report 25245030 (Version 2)
Quarter: 2025Q2

REPORT INFORMATION
  Report Type: Report from Study
  Country: US (occurrence: US)
  Receive Date: 20250428
  Receipt Date: 20250530
  Transmission Date: 20250716
  Serious: Yes (Hospitalization, Other)
  Sender: Unknown Manufacturer
  Company Number: US-RHYTHM PHARMACEUTICALS, INC.-2025RHM000246

PATIENT
  Sex: Female

DRUGS (14)
  1. SETMELANOTIDE [Suspect]
     Active Substance: SETMELANOTIDE
     Indication: Laurence-Moon-Bardet-Biedl syndrome
     Dosage: 3 MILLIGRAM, QD
     Route: 058
     Dates: start: 20250303
  2. BUPROPION [Concomitant]
     Active Substance: BUPROPION
     Indication: Product used for unknown indication
  3. CETIRIZINE [Concomitant]
     Active Substance: CETIRIZINE HYDROCHLORIDE
     Indication: Product used for unknown indication
  4. CHOLECALCIFEROL [Concomitant]
     Active Substance: CHOLECALCIFEROL
     Indication: Product used for unknown indication
  5. DESCOVY [Concomitant]
     Active Substance: EMTRICITABINE\TENOFOVIR ALAFENAMIDE FUMARATE
     Indication: Product used for unknown indication
  6. FLUOXETINE [Concomitant]
     Active Substance: FLUOXETINE HYDROCHLORIDE
     Indication: Product used for unknown indication
  7. ACETAMINOPHEN\HYDROCODONE [Concomitant]
     Active Substance: ACETAMINOPHEN\HYDROCODONE
     Indication: Product used for unknown indication
  8. LOMAIRA [Concomitant]
     Active Substance: PHENTERMINE HYDROCHLORIDE
     Indication: Product used for unknown indication
  9. METFORMIN [Concomitant]
     Active Substance: METFORMIN HYDROCHLORIDE
     Indication: Product used for unknown indication
  10. OMEPRAZOLE [Concomitant]
     Active Substance: OMEPRAZOLE
     Indication: Product used for unknown indication
  11. PIFELTRO [Concomitant]
     Active Substance: DORAVIRINE
     Indication: Product used for unknown indication
  12. PROLIA [Concomitant]
     Active Substance: DENOSUMAB
     Indication: Product used for unknown indication
  13. TOPIRAMATE [Concomitant]
     Active Substance: TOPIRAMATE
     Indication: Product used for unknown indication
  14. TRAZODONE [Concomitant]
     Active Substance: TRAZODONE HYDROCHLORIDE
     Indication: Product used for unknown indication

REACTIONS (4)
  - Haematochezia [Unknown]
  - Hot flush [Unknown]
  - Dizziness [Unknown]
  - Abdominal pain upper [Unknown]
